FAERS Safety Report 17088469 (Version 1)
Quarter: 2019Q4

REPORT INFORMATION
  Report Type: Spontaneous
  Country: DE (occurrence: DE)
  Receive Date: 20191128
  Receipt Date: 20191128
  Transmission Date: 20200122
  Serious: Yes (Other)
  Sender: FDA-Public Use
  Company Number: NVSC2019DE045916

PATIENT
  Age: 1 Day
  Sex: Female
  Weight: 3.71 kg

DRUGS (5)
  1. PARACETAMOL [Concomitant]
     Active Substance: ACETAMINOPHEN
     Indication: FOETAL EXPOSURE DURING PREGNANCY
     Dosage: MOTHER DOSE: (IN TOTAL 4 TABLETS)
     Route: 064
  2. FOLSAN [Concomitant]
     Active Substance: FOLIC ACID
     Indication: FOETAL EXPOSURE DURING PREGNANCY
     Dosage: MOTHER DOSE: 5 MG, QD (5 [MG/D ])
     Route: 064
     Dates: start: 20171209, end: 20180801
  3. L-THYROXINE [Concomitant]
     Active Substance: LEVOTHYROXINE
     Indication: FOETAL EXPOSURE DURING PREGNANCY
     Dosage: MOTHER DOSE: 75 UG, QD (75 [?G/D ])
     Route: 064
     Dates: start: 20171209, end: 20180922
  4. VITAMIN B COMPLEX [Concomitant]
     Active Substance: CYANOCOBALAMIN\DEXPANTHENOL\NIACINAMIDE\PYRIDOXINE HYDROCHLORIDE\RIBOFLAVIN 5^-PHOSPHATE SODIUM\THIAMINE HYDROCHLORIDE\VITAMIN B COMPLEX
     Indication: FOETAL EXPOSURE DURING PREGNANCY
     Dosage: UNK
     Route: 064
     Dates: start: 20171209, end: 20180922
  5. METOPROLOL SUCCINATE. [Suspect]
     Active Substance: METOPROLOL SUCCINATE
     Indication: FOETAL EXPOSURE DURING PREGNANCY
     Dosage: MOTHER DOSE: 95 MG, QD (95 [MG/D ])
     Route: 064
     Dates: start: 20171209, end: 20180922

REACTIONS (5)
  - Foetal exposure during pregnancy [Unknown]
  - Arrhythmia neonatal [Recovered/Resolved]
  - Hypoglycaemia neonatal [Recovered/Resolved]
  - Naevus flammeus [Unknown]
  - Neonatal infection [Recovered/Resolved]

NARRATIVE: CASE EVENT DATE: 20180922
